FAERS Safety Report 9427631 (Version 1)
Quarter: 2013Q3

REPORT INFORMATION
  Report Type: Spontaneous
  Country: US (occurrence: US)
  Receive Date: 20130730
  Receipt Date: 20130730
  Transmission Date: 20140515
  Serious: No
  Sender: FDA-Public Use
  Company Number: US-ABBOTT-12P-163-0988288-00

PATIENT
  Sex: Male
  Weight: 73.55 kg

DRUGS (9)
  1. NIASPAN (COATED) [Suspect]
     Indication: LOW DENSITY LIPOPROTEIN INCREASED
  2. METOPROLOL [Concomitant]
     Indication: HYPERTENSION
  3. PROSCAR [Concomitant]
     Indication: HYPERTENSION
  4. PROTONIX [Concomitant]
     Indication: PRODUCT USED FOR UNKNOWN INDICATION
  5. HYALURONIC ACID [Concomitant]
     Indication: PROPHYLAXIS
  6. COSAMINE [Concomitant]
     Indication: PROPHYLAXIS
  7. CHOLESTOFF OTC [Concomitant]
     Indication: BLOOD CHOLESTEROL ABNORMAL
  8. LEGATRIN PM [Concomitant]
     Indication: MUSCLE SPASMS
  9. MVI [Concomitant]
     Indication: PRODUCT USED FOR UNKNOWN INDICATION

REACTIONS (2)
  - Drug ineffective [Unknown]
  - Flushing [Unknown]
